FAERS Safety Report 6790262-8 (Version None)
Quarter: 2010Q2

REPORT INFORMATION
  Report Type: 
  Country: None (occurrence: None)
  Receive Date: 20100624
  Receipt Date: 20100617
  Transmission Date: 20101027
  Serious: Yes (Hospitalization, Other)
  Sender: FDA-Public Use
  Company Number: DE-BRISTOL-MYERS SQUIBB COMPANY-15154834

PATIENT
  Age: 34 Year
  Sex: Female

DRUGS (4)
  1. ABILIFY [Suspect]
  2. SEROQUEL [Suspect]
  3. AMISULPRIDE [Suspect]
  4. LAMOTRIGINE [Suspect]

REACTIONS (6)
  - ACIDOSIS [None]
  - ATRIOVENTRICULAR BLOCK [None]
  - BLOOD LACTIC ACID INCREASED [None]
  - BRADYARRHYTHMIA [None]
  - CARDIOVASCULAR INSUFFICIENCY [None]
  - SUICIDE ATTEMPT [None]
